FAERS Safety Report 7668643-X (Version None)
Quarter: 2011Q3

REPORT INFORMATION
  Report Type: 
  Country: None (occurrence: None)
  Receive Date: 20110808
  Receipt Date: 20110808
  Transmission Date: 20111222
  Serious: Yes (Other)
  Sender: FDA-Public Use
  Company Number: None

PATIENT
  Age: 18 Month
  Sex: Male
  Weight: 13.607 kg

DRUGS (1)
  1. ACETAMINOPHEN [Suspect]
     Indication: PYREXIA
     Dosage: 5 MG
     Route: 048
     Dates: start: 20110803, end: 20110806

REACTIONS (6)
  - HYPOPHAGIA [None]
  - EXPIRED DRUG ADMINISTERED [None]
  - DEPRESSED LEVEL OF CONSCIOUSNESS [None]
  - INSOMNIA [None]
  - ASTHENIA [None]
  - DRUG DISPENSING ERROR [None]
